FAERS Safety Report 26063761 (Version 1)
Quarter: 2025Q4

REPORT INFORMATION
  Report Type: Spontaneous
  Country: GB (occurrence: GB)
  Receive Date: 20251119
  Receipt Date: 20251119
  Transmission Date: 20260117
  Serious: Yes (Death, Other)
  Sender: ALEXION PHARMACEUTICALS
  Company Number: GB-AstraZeneca-CH-00995729A

PATIENT
  Age: 80 Year
  Sex: Male

DRUGS (1)
  1. EPLONTERSEN SODIUM [Suspect]
     Active Substance: EPLONTERSEN SODIUM
     Route: 065

REACTIONS (2)
  - Infection [Fatal]
  - Hepatic cancer recurrent [Fatal]
